FAERS Safety Report 7041474-X (Version None)
Quarter: 2010Q4

REPORT INFORMATION
  Report Type: 
  Country: None (occurrence: None)
  Receive Date: 20101013
  Receipt Date: 20091009
  Transmission Date: 20110411
  Serious: No
  Sender: FDA-Public Use
  Company Number: US-ASTRAZENECA-2009SE19216

PATIENT
  Age: 899 Month
  Sex: Female
  Weight: 59 kg

DRUGS (8)
  1. SYMBICORT [Suspect]
     Indication: CHRONIC OBSTRUCTIVE PULMONARY DISEASE
     Dosage: 2 PUFFS BID
     Route: 055
     Dates: start: 20090701
  2. SYMBICORT [Suspect]
     Indication: EMPHYSEMA
     Dosage: 2 PUFFS BID
     Route: 055
     Dates: start: 20090701
  3. PREVACID [Concomitant]
  4. ACTONEL [Concomitant]
  5. NORVASC [Concomitant]
  6. COREG [Concomitant]
  7. BENICAR [Concomitant]
  8. EVISTA [Concomitant]

REACTIONS (2)
  - COUGH [None]
  - INCREASED UPPER AIRWAY SECRETION [None]
